FAERS Safety Report 16693636 (Version 1)
Quarter: 2019Q3

REPORT INFORMATION
  Report Type: Spontaneous
  Country: US (occurrence: US)
  Receive Date: 20190812
  Receipt Date: 20190812
  Transmission Date: 20191004
  Serious: No
  Sender: FDA-Public Use
  Company Number: US-IBSA PHARMA-TIR-2018-0009

PATIENT
  Age: 71 Year
  Sex: Female
  Weight: 55.39 kg

DRUGS (6)
  1. TIROSINT [Suspect]
     Active Substance: LEVOTHYROXINE SODIUM
     Route: 048
     Dates: start: 201812
  2. TIROSINT [Suspect]
     Active Substance: LEVOTHYROXINE SODIUM
     Dosage: 75MCG DAILY SIX DAYS A WEEK
     Route: 048
     Dates: start: 201712, end: 201712
  3. TIROSINT [Suspect]
     Active Substance: LEVOTHYROXINE SODIUM
     Indication: AUTOIMMUNE THYROIDITIS
     Dosage: 75MCG DAILY 7 DAYS A WEEK
     Route: 048
     Dates: start: 201408, end: 20171229
  4. COMPOUNDED T3 PRODUCT [Suspect]
     Active Substance: LIOTHYRONINE SODIUM
     Indication: PRODUCT USED FOR UNKNOWN INDICATION
     Dosage: 5MG
     Route: 048
     Dates: start: 20171111, end: 201712
  5. TIROSINT [Suspect]
     Active Substance: LEVOTHYROXINE SODIUM
     Indication: AUTOIMMUNE THYROIDITIS
     Route: 048
     Dates: start: 201807, end: 201812
  6. TIROSINT [Suspect]
     Active Substance: LEVOTHYROXINE SODIUM
     Route: 048

REACTIONS (7)
  - Rash pruritic [Not Recovered/Not Resolved]
  - Swelling face [Not Recovered/Not Resolved]
  - Inappropriate schedule of product administration [Recovered/Resolved]
  - Rash [Not Recovered/Not Resolved]
  - Drug level above therapeutic [Unknown]
  - Rash erythematous [Not Recovered/Not Resolved]
  - Skin burning sensation [Not Recovered/Not Resolved]

NARRATIVE: CASE EVENT DATE: 201712
